FAERS Safety Report 14524276 (Version 1)
Quarter: 2018Q1

REPORT INFORMATION
  Report Type: Spontaneous
  Country: US (occurrence: US)
  Receive Date: 20180213
  Receipt Date: 20180213
  Transmission Date: 20180509
  Serious: No
  Sender: FDA-Public Use
  Company Number: US-PFIZER INC-2018057289

PATIENT
  Sex: Female

DRUGS (3)
  1. RELAFEN [Suspect]
     Active Substance: NABUMETONE
     Dosage: UNK
  2. DAYPRO [Suspect]
     Active Substance: OXAPROZIN
     Dosage: UNK
  3. ZESTRIL [Suspect]
     Active Substance: LISINOPRIL
     Dosage: UNK

REACTIONS (2)
  - Swelling [Unknown]
  - Drug hypersensitivity [Unknown]
